FAERS Safety Report 21581904 (Version 2)
Quarter: 2023Q1

REPORT INFORMATION
  Report Type: Report from Study
  Country: PS (occurrence: None)
  Receive Date: 20221111
  Receipt Date: 20230321
  Transmission Date: 20230418
  Serious: Yes (Other)
  Sender: FDA-Public Use
  Company Number: PS-Merck Healthcare KGaA-9322814

PATIENT
  Age: 29 Year
  Sex: Female

DRUGS (2)
  1. REBIF [Suspect]
     Active Substance: INTERFERON BETA-1A
     Indication: Multiple sclerosis
     Route: 058
     Dates: start: 20180413
  2. REBIF [Suspect]
     Active Substance: INTERFERON BETA-1A
     Dosage: PREFILLED SYRINGE
     Dates: start: 20211211

REACTIONS (6)
  - Amniotic fluid volume increased [Unknown]
  - Increased foetal movements [Unknown]
  - Dyspnoea [Unknown]
  - Abdominal pain [Unknown]
  - Normal newborn [Recovered/Resolved]
  - Maternal exposure during pregnancy [Recovered/Resolved]

NARRATIVE: CASE EVENT DATE: 20211218
